FAERS Safety Report 20969134 (Version 1)
Quarter: 2022Q2

REPORT INFORMATION
  Report Type: Spontaneous
  Country: CN (occurrence: CN)
  Receive Date: 20220616
  Receipt Date: 20220616
  Transmission Date: 20220721
  Serious: Yes (Other)
  Sender: FDA-Public Use
  Company Number: CN-PFIZER INC-PV202200003144

PATIENT
  Age: 9 Year
  Sex: Female

DRUGS (3)
  1. CYTARABINE [Suspect]
     Active Substance: CYTARABINE
     Indication: Lymphocytic leukaemia
     Dosage: 0.500000 G, 2X/DAY
     Route: 041
     Dates: start: 20220509, end: 20220510
  2. LANSOPRAZOLE [Concomitant]
     Active Substance: LANSOPRAZOLE
     Indication: Abdominal discomfort
     Dosage: 15.000 MG, 1X/DAY
     Route: 048
     Dates: start: 20220508, end: 20220518
  3. HYDROTALCITE [Concomitant]
     Active Substance: HYDROTALCITE
     Indication: Abdominal discomfort
     Dosage: 0.500 G, 3X/DAY
     Route: 048
     Dates: start: 20220508, end: 20220518

REACTIONS (5)
  - Pyrexia [Recovered/Resolved]
  - Nausea [Recovered/Resolved]
  - Vomiting [Recovered/Resolved]
  - Cytarabine syndrome [Recovered/Resolved]
  - Temperature intolerance [Recovered/Resolved]

NARRATIVE: CASE EVENT DATE: 20220509
